FAERS Safety Report 25547694 (Version 4)
Quarter: 2025Q3

REPORT INFORMATION
  Report Type: Spontaneous
  Country: EU (occurrence: EU)
  Receive Date: 20250714
  Receipt Date: 20250801
  Transmission Date: 20251020
  Serious: Yes (Other)
  Sender: AUROBINDO
  Company Number: EU-CELLTRION INC.-2025PT019005

PATIENT
  Age: 36 Year
  Sex: Male

DRUGS (5)
  1. PREDNISOLONE [Suspect]
     Active Substance: PREDNISOLONE
     Indication: Immunosuppressant drug therapy
     Route: 065
  2. MYCOPHENOLATE MOFETIL [Suspect]
     Active Substance: MYCOPHENOLATE MOFETIL
     Indication: Immunosuppressant drug therapy
     Dosage: 1500 MILLIGRAM, ONCE A DAY
     Route: 065
  3. RITUXIMAB [Suspect]
     Active Substance: RITUXIMAB
     Indication: Immunosuppressant drug therapy
     Route: 042
  4. METHYLPREDNISOLONE [Suspect]
     Active Substance: METHYLPREDNISOLONE
     Indication: Immunosuppressant drug therapy
     Dosage: 1 GRAM, ONCE A DAY
     Route: 042
  5. Immunoglobulin [Concomitant]
     Indication: Immunosuppressant drug therapy
     Route: 042

REACTIONS (7)
  - Strongyloidiasis [Recovering/Resolving]
  - Sepsis [Recovering/Resolving]
  - Intestinal obstruction [Recovering/Resolving]
  - Escherichia infection [Recovering/Resolving]
  - Enterococcal infection [Recovering/Resolving]
  - Pseudomonas infection [Recovering/Resolving]
  - Drug ineffective [Unknown]
